FAERS Safety Report 7813769-0 (Version None)
Quarter: 2011Q4

REPORT INFORMATION
  Report Type: 
  Country: None (occurrence: None)
  Receive Date: 20111014
  Receipt Date: 20110927
  Transmission Date: 20120403
  Serious: Yes (Hospitalization, Other)
  Sender: FDA-Public Use
  Company Number: US-JNJFOC-20110811122

PATIENT
  Sex: Male

DRUGS (8)
  1. LIALDA [Concomitant]
     Indication: CROHN'S DISEASE
     Route: 048
  2. ZITHROMAX [Concomitant]
     Route: 042
  3. VITAMIN D [Concomitant]
     Route: 065
  4. PREDNISONE [Concomitant]
     Indication: CROHN'S DISEASE
     Dosage: WEANING DOWN TO 20 MG PER DAY
     Route: 065
  5. VITAMINS NOS [Concomitant]
     Route: 065
  6. REMICADE [Suspect]
     Indication: CROHN'S DISEASE
     Dosage: DOSE SUSPECTED TO BE 5MG/KG
     Route: 042
     Dates: start: 20110101
  7. AUGMENTIN '125' [Concomitant]
     Route: 065
  8. CIPROFLOXACIN [Concomitant]
     Route: 065

REACTIONS (19)
  - DIARRHOEA [None]
  - PYREXIA [None]
  - COUGH [None]
  - SINUSITIS [None]
  - VOMITING [None]
  - WEIGHT DECREASED [None]
  - PNEUMONIA [None]
  - DYSPEPSIA [None]
  - CROHN'S DISEASE [None]
  - HICCUPS [None]
  - WHITE BLOOD CELL COUNT INCREASED [None]
  - URINE LEUKOCYTE ESTERASE POSITIVE [None]
  - CHEST PAIN [None]
  - HOSPITALISATION [None]
  - CONVULSION [None]
  - LIPASE INCREASED [None]
  - INFECTION [None]
  - NAUSEA [None]
  - ABDOMINAL PAIN UPPER [None]
